FAERS Safety Report 12763956 (Version 2)
Quarter: 2016Q4

REPORT INFORMATION
  Report Type: Spontaneous
  Country: US (occurrence: US)
  Receive Date: 20160920
  Receipt Date: 20161005
  Transmission Date: 20170207
  Serious: No
  Sender: FDA-Public Use
  Company Number: US-BAYER-2016-180568

PATIENT
  Age: 74 Year
  Sex: Female

DRUGS (1)
  1. CLIMARA [Suspect]
     Active Substance: ESTRADIOL
     Indication: HORMONE REPLACEMENT THERAPY
     Dosage: 0.1 MG/24HR, CONT
     Route: 062

REACTIONS (2)
  - Incorrect drug administration duration [None]
  - Product adhesion issue [None]

NARRATIVE: CASE EVENT DATE: 2016
